FAERS Safety Report 19014996 (Version 1)
Quarter: 2021Q1

REPORT INFORMATION
  Report Type: Spontaneous
  Country: IT (occurrence: IT)
  Receive Date: 20210316
  Receipt Date: 20210316
  Transmission Date: 20210420
  Serious: Yes (Other)
  Sender: FDA-Public Use
  Company Number: IT-SAMSUNG BIOEPIS-SB-2021-06290

PATIENT
  Age: 48 Year
  Sex: Female

DRUGS (1)
  1. BENEPALI [Suspect]
     Active Substance: ETANERCEPT
     Indication: PSORIATIC ARTHROPATHY
     Route: 058

REACTIONS (4)
  - Local reaction [Unknown]
  - Dyspnoea [Unknown]
  - Skin reaction [Unknown]
  - Injection site reaction [Unknown]

NARRATIVE: CASE EVENT DATE: 20201226
